FAERS Safety Report 10401915 (Version 1)
Quarter: 2014Q3

REPORT INFORMATION
  Report Type: Spontaneous
  Country: US (occurrence: None)
  Receive Date: 20140820
  Receipt Date: 20140820
  Transmission Date: 20150326
  Serious: Yes (Other)
  Sender: FDA-Public Use
  Company Number: None

PATIENT
  Age: 51 Year
  Sex: Female
  Weight: 56.25 kg

DRUGS (3)
  1. BENADRYL [Suspect]
     Active Substance: DIPHENHYDRAMINE HYDROCHLORIDE
     Indication: HYPERSENSITIVITY
     Route: 048
     Dates: start: 20140728, end: 20140816
  2. FISH OIL [Concomitant]
     Active Substance: FISH OIL
  3. VITAMIN C [Concomitant]
     Active Substance: ASCORBIC ACID

REACTIONS (16)
  - Gait disturbance [None]
  - Dizziness [None]
  - Insomnia [None]
  - Pruritus [None]
  - Anxiety [None]
  - Legal problem [None]
  - Rib fracture [None]
  - Confusional state [None]
  - Balance disorder [None]
  - Fall [None]
  - Head injury [None]
  - Memory impairment [None]
  - Nightmare [None]
  - Photopsia [None]
  - Dysarthria [None]
  - Coordination abnormal [None]

NARRATIVE: CASE EVENT DATE: 20140818
